FAERS Safety Report 8444057-X (Version None)
Quarter: 2012Q2

REPORT INFORMATION
  Report Type: 
  Country: None (occurrence: None)
  Receive Date: 20120618
  Receipt Date: 20120613
  Transmission Date: 20120825
  Serious: Yes (Death)
  Sender: FDA-Public Use
  Company Number: PHHY2012SA050507

PATIENT
  Age: 10 Year
  Sex: Female

DRUGS (2)
  1. SANDOSTATIN [Suspect]
     Indication: UPPER GASTROINTESTINAL HAEMORRHAGE
     Dosage: 2 UG/KG/HOUR
     Route: 040
  2. SANDOSTATIN [Suspect]
     Dosage: 2 UG/KG/HOUR
     Route: 042

REACTIONS (5)
  - DRUG ADMINISTRATION ERROR [None]
  - ARRHYTHMIA [None]
  - HYPERKALAEMIA [None]
  - TREATMENT FAILURE [None]
  - PULMONARY OEDEMA [None]
